FAERS Safety Report 16543743 (Version 5)
Quarter: 2020Q3

REPORT INFORMATION
  Report Type: Report from Study
  Country: JP (occurrence: JP)
  Receive Date: 20190709
  Receipt Date: 20200303
  Transmission Date: 20201105
  Serious: Yes (Hospitalization)
  Sender: FDA-Public Use
  Company Number: JP-ROCHE-2238698

PATIENT
  Age: 77 Year
  Sex: Female
  Weight: 34.2 kg

DRUGS (29)
  1. POLATUZUMAB VEDOTIN. [Suspect]
     Active Substance: POLATUZUMAB VEDOTIN
     Indication: DIFFUSE LARGE B-CELL LYMPHOMA
     Dosage: 1.8 MG/KG
     Route: 042
     Dates: start: 20181120
  2. BENDAMUSTINE [Suspect]
     Active Substance: BENDAMUSTINE
     Indication: DIFFUSE LARGE B-CELL LYMPHOMA
     Dosage: 90 MG/M2
     Route: 042
     Dates: start: 20181121
  3. SULPIRIDE [Suspect]
     Active Substance: SULPIRIDE
     Route: 048
     Dates: start: 20181226
  4. DEXART [Suspect]
     Active Substance: DEXAMETHASONE SODIUM PHOSPHATE
     Dosage: DOSE INTERVAL UNCERTAINTY
     Route: 042
     Dates: start: 20181213
  5. LIPITOR [Concomitant]
     Active Substance: ATORVASTATIN CALCIUM
     Indication: HYPERLIPIDAEMIA
     Route: 048
  6. MAGNESIUM OXIDE. [Concomitant]
     Active Substance: MAGNESIUM OXIDE
     Indication: CONSTIPATION
     Route: 048
     Dates: start: 20181120
  7. SULPIRIDE [Suspect]
     Active Substance: SULPIRIDE
     Route: 048
     Dates: start: 20181203, end: 20181214
  8. THYRADIN?S [Concomitant]
     Active Substance: LEVOTHYROXINE
     Route: 048
     Dates: start: 20190123, end: 20190129
  9. MECOBALAMIN [Concomitant]
     Active Substance: METHYLCOBALAMIN
     Indication: HYPOVITAMINOSIS
     Route: 048
  10. FLUCONAZOLE. [Concomitant]
     Active Substance: FLUCONAZOLE
     Indication: INFECTION PROPHYLAXIS
     Route: 048
     Dates: start: 20181120
  11. BLOPRESS [Concomitant]
     Active Substance: CANDESARTAN CILEXETIL
     Indication: HYPERTENSION
     Route: 048
  12. BENDAMUSTINE [Suspect]
     Active Substance: BENDAMUSTINE
     Route: 042
     Dates: start: 20181123
  13. SULPIRIDE [Suspect]
     Active Substance: SULPIRIDE
     Indication: GASTRITIS PROPHYLAXIS
     Route: 048
     Dates: start: 20181125, end: 20181203
  14. DAIPHEN [Concomitant]
     Active Substance: SULFAMETHOXAZOLE\TRIMETHOPRIM
     Indication: INFECTION PROPHYLAXIS
     Route: 048
     Dates: start: 20181120
  15. SULPIRIDE [Suspect]
     Active Substance: SULPIRIDE
     Indication: FATIGUE
     Route: 048
     Dates: start: 20181120, end: 20181124
  16. ACICLOVIR [Concomitant]
     Active Substance: ACYCLOVIR
     Indication: INFECTION PROPHYLAXIS
     Route: 048
     Dates: start: 20181120
  17. POLATUZUMAB VEDOTIN. [Suspect]
     Active Substance: POLATUZUMAB VEDOTIN
     Route: 042
     Dates: start: 20181213
  18. BENDAMUSTINE [Suspect]
     Active Substance: BENDAMUSTINE
     Route: 042
     Dates: start: 20181122
  19. REFLEX [Concomitant]
     Active Substance: MIRTAZAPINE
     Indication: DEPRESSION
     Route: 048
     Dates: start: 20181126
  20. RITUXIMAB. [Suspect]
     Active Substance: RITUXIMAB
     Indication: DIFFUSE LARGE B-CELL LYMPHOMA
     Dosage: IT IS ONE COURSE EVERY THREE WEEKS. 375 MG/M2
     Route: 041
     Dates: start: 20181120, end: 20181120
  21. RITUXIMAB. [Suspect]
     Active Substance: RITUXIMAB
     Route: 041
     Dates: start: 20181213, end: 20181213
  22. THYRADIN?S [Concomitant]
     Active Substance: LEVOTHYROXINE
     Indication: HYPOTHYROIDISM
     Route: 048
     Dates: end: 20190117
  23. THYRADIN?S [Concomitant]
     Active Substance: LEVOTHYROXINE
     Route: 048
     Dates: start: 20190118, end: 20190122
  24. THYRADIN?S [Concomitant]
     Active Substance: LEVOTHYROXINE
     Route: 048
     Dates: start: 20190130
  25. JUVELA N [Concomitant]
     Active Substance: TOCOPHERYL NICOTINATE, D-.ALPHA.
     Indication: HYPOVITAMINOSIS
     Route: 048
  26. BENDAMUSTINE [Suspect]
     Active Substance: BENDAMUSTINE
     Route: 042
     Dates: start: 20181214
  27. SULPIRIDE [Suspect]
     Active Substance: SULPIRIDE
     Route: 048
     Dates: start: 20181215, end: 20181226
  28. DEXART [Suspect]
     Active Substance: DEXAMETHASONE SODIUM PHOSPHATE
     Indication: PREMEDICATION
     Dosage: DOSE INTERVAL UNCERTAINTY
     Route: 042
     Dates: start: 20181121
  29. LANSOPRAZOLE. [Concomitant]
     Active Substance: LANSOPRAZOLE
     Indication: GASTRITIS PROPHYLAXIS
     Route: 048

REACTIONS (3)
  - Peripheral sensory neuropathy [Not Recovered/Not Resolved]
  - Peripheral motor neuropathy [Not Recovered/Not Resolved]
  - Fatigue [Recovered/Resolved]

NARRATIVE: CASE EVENT DATE: 20181214
